FAERS Safety Report 17564021 (Version 1)
Quarter: 2020Q1

REPORT INFORMATION
  Report Type: Spontaneous
  Country: US (occurrence: US)
  Receive Date: 20200320
  Receipt Date: 20200320
  Transmission Date: 20200409
  Serious: Yes (Hospitalization, Other)
  Sender: FDA-Public Use
  Company Number: US-ADVANZ PHARMA-202003001710

PATIENT

DRUGS (3)
  1. METRONIDAZOLE. [Concomitant]
     Active Substance: METRONIDAZOLE
     Indication: VULVOVAGINITIS TRICHOMONAL
     Dosage: UNK
     Route: 048
  2. PREDNISONE. [Suspect]
     Active Substance: PREDNISONE
     Indication: SYSTEMIC LUPUS ERYTHEMATOSUS
     Dosage: 5 MG, QD
     Route: 065
  3. HYDROXYCHLOROQUINE [Suspect]
     Active Substance: HYDROXYCHLOROQUINE
     Indication: SYSTEMIC LUPUS ERYTHEMATOSUS
     Dosage: 200 MG, BID, TABLET
     Route: 065

REACTIONS (13)
  - Lethargy [Recovering/Resolving]
  - Abdominal pain upper [Recovering/Resolving]
  - Musculoskeletal chest pain [Recovering/Resolving]
  - Somnolence [Recovering/Resolving]
  - Dyspnoea [Recovering/Resolving]
  - Lymphopenia [Recovering/Resolving]
  - Nausea [Recovering/Resolving]
  - Thrombocytopenia [Recovering/Resolving]
  - Herpes simplex hepatitis [Recovering/Resolving]
  - Chest pain [Recovering/Resolving]
  - Cough [Recovering/Resolving]
  - Abdominal tenderness [Recovering/Resolving]
  - Decreased appetite [Recovering/Resolving]
